FAERS Safety Report 15808313 (Version 4)
Quarter: 2019Q1

REPORT INFORMATION
  Report Type: Report from Study
  Country: US (occurrence: US)
  Receive Date: 20190110
  Receipt Date: 20190319
  Transmission Date: 20190417
  Serious: Yes (Hospitalization, Other)
  Sender: FDA-Public Use
  Company Number: US-GILEAD-2018-0378333

PATIENT
  Age: 88 Year
  Sex: Female

DRUGS (1)
  1. AMBRISENTAN [Suspect]
     Active Substance: AMBRISENTAN
     Indication: PRODUCT USED FOR UNKNOWN INDICATION
     Dosage: 5 MG, QD
     Route: 065
     Dates: start: 20160125

REACTIONS (16)
  - Spinal fusion surgery [Unknown]
  - Fall [Unknown]
  - Back injury [Unknown]
  - Incontinence [Not Recovered/Not Resolved]
  - Rib fracture [Unknown]
  - Blindness unilateral [Not Recovered/Not Resolved]
  - Fall [Unknown]
  - Fall [Recovered/Resolved]
  - Fall [Unknown]
  - Injury [Unknown]
  - Ankle fracture [Not Recovered/Not Resolved]
  - Rib fracture [Not Recovered/Not Resolved]
  - Ankle fracture [Unknown]
  - Gait inability [Not Recovered/Not Resolved]
  - Lower limb fracture [Unknown]
  - Aortic valve incompetence [Unknown]

NARRATIVE: CASE EVENT DATE: 201804
